FAERS Safety Report 7128697-6 (Version None)
Quarter: 2010Q4

REPORT INFORMATION
  Report Type: 
  Country: None (occurrence: None)
  Receive Date: 20101130
  Receipt Date: 20101118
  Transmission Date: 20110411
  Serious: Yes (Other)
  Sender: FDA-Public Use
  Company Number: US-JNJFOC-20101107785

PATIENT

DRUGS (3)
  1. CONCERTA [Suspect]
     Indication: ILL-DEFINED DISORDER
     Route: 048
  2. CONCERTA [Suspect]
     Route: 048
  3. OXYCONTIN [Concomitant]
     Route: 065

REACTIONS (3)
  - ORAL PRURITUS [None]
  - RASH [None]
  - SWOLLEN TONGUE [None]
